FAERS Safety Report 14350852 (Version 2)
Quarter: 2018Q1

REPORT INFORMATION
  Report Type: Spontaneous
  Country: ES (occurrence: ES)
  Receive Date: 20180104
  Receipt Date: 20180108
  Transmission Date: 20180509
  Serious: No
  Sender: FDA-Public Use
  Company Number: ES-PFIZER INC-2018000907

PATIENT
  Age: 80 Year
  Sex: Male

DRUGS (7)
  1. IMATINIB [Interacting]
     Active Substance: IMATINIB
     Dosage: 800 MG, UNK
  2. IMATINIB [Interacting]
     Active Substance: IMATINIB
     Dosage: 600 MG, UNK
  3. IMATINIB [Interacting]
     Active Substance: IMATINIB
     Dosage: 400 MG, UNK
  4. PHENYTOIN SODIUM. [Suspect]
     Active Substance: PHENYTOIN SODIUM
     Indication: SEIZURE
     Dosage: UNK
  5. IMATINIB [Interacting]
     Active Substance: IMATINIB
     Indication: CHRONIC MYELOID LEUKAEMIA
     Dosage: 400 MG, UNK
  6. TRIPTORELIN [Concomitant]
     Active Substance: TRIPTORELIN
     Dosage: UNK
  7. IMATINIB [Interacting]
     Active Substance: IMATINIB
     Dosage: 600 MG, UNK

REACTIONS (2)
  - Drug interaction [Unknown]
  - Drug level decreased [Unknown]
